FAERS Safety Report 17722773 (Version 1)
Quarter: 2020Q2

REPORT INFORMATION
  Report Type: Report from Study
  Country: US (occurrence: US)
  Receive Date: 20200429
  Receipt Date: 20200429
  Transmission Date: 20200714
  Serious: Yes (Hospitalization)
  Sender: FDA-Public Use
  Company Number: US-MYLANLABS-2020M1041405

PATIENT

DRUGS (3)
  1. ROPIVACAINE. [Suspect]
     Active Substance: ROPIVACAINE HYDROCHLORIDE
     Indication: PRODUCT USED FOR UNKNOWN INDICATION
     Dosage: 7.5MG/ML; 50% MIXTURE WITH BUPIVACAINE 2.5MG/ML
     Route: 050
  2. BUPIVACAINE. [Suspect]
     Active Substance: BUPIVACAINE
     Indication: PRODUCT USED FOR UNKNOWN INDICATION
     Dosage: 2.5MG/ML; 50% MIXTURE WITH ROPIVACAINE 7.5MG/ML; ROUTE: INTERCOSTAL INJECTION.
     Route: 050
  3. ACETAMINOPHEN. [Suspect]
     Active Substance: ACETAMINOPHEN
     Indication: POSTOPERATIVE ANALGESIA
     Route: 042

REACTIONS (3)
  - Condition aggravated [Recovering/Resolving]
  - Interstitial lung disease [Recovering/Resolving]
  - Pulmonary function test decreased [Recovering/Resolving]
